FAERS Safety Report 9505421 (Version 1)
Quarter: 2013Q1

REPORT INFORMATION
  Report Type: Spontaneous
  Country: US (occurrence: None)
  Receive Date: 20130220
  Receipt Date: 20130220
  Transmission Date: 20140127
  Serious: No
  Sender: FDA-Public Use
  Company Number: 1000040261

PATIENT
  Age: 49 Year
  Sex: Female

DRUGS (5)
  1. VIIBYRD (VILAZODONE HYDROCHLORIDE) (10 MILLIGRAM, TABLETS) [Suspect]
     Indication: DEPRESSION
     Dosage: 10 MG (10 MG, 1 IN 1 D), ORAL
     Route: 048
     Dates: start: 20121029, end: 20121104
  2. HYZAAR (HYZAAR) (HYZAAR) [Concomitant]
  3. COZAAR (LOSARTAN POTASSIUM) (LOSARTAN POTASSIUM) [Concomitant]
  4. NORVASC (AMLODIPINE BESILATE) (AMLODIPINE BESILATE) [Concomitant]
  5. MELOXICAM (MELOXICAM) (MELOXICAM) [Concomitant]

REACTIONS (2)
  - Insomnia [None]
  - Nausea [None]
